FAERS Safety Report 8120925-3 (Version None)
Quarter: 2012Q1

REPORT INFORMATION
  Report Type: 
  Country: None (occurrence: None)
  Receive Date: 20120208
  Receipt Date: 20120130
  Transmission Date: 20120608
  Serious: Yes (Hospitalization)
  Sender: FDA-Public Use
  Company Number: US-BAYER-2011-074751

PATIENT
  Age: 25 Year
  Sex: Female
  Weight: 114.74 kg

DRUGS (9)
  1. TRAMADOL HCL [Concomitant]
     Indication: PAIN
     Dosage: 50 MG, UNK
     Route: 048
     Dates: end: 20090501
  2. ROCEPHIN [Concomitant]
     Indication: PYELONEPHRITIS
     Dosage: UNK
     Dates: start: 20090401
  3. MORPHINE [Concomitant]
     Indication: PYELONEPHRITIS
     Dosage: UNK
     Dates: start: 20090401
  4. YAZ [Suspect]
     Indication: CONTRACEPTION
     Dosage: UNK
     Dates: start: 20050101, end: 20090101
  5. DROSPIRENONE AND ETHINYL ESTRADIOL [Suspect]
     Indication: CONTRACEPTION
     Dosage: UNK
     Dates: start: 20050101, end: 20090101
  6. XANAX [Concomitant]
  7. PROTONIX [Concomitant]
     Indication: ABDOMINAL PAIN
     Dosage: 40 MG, ONCE
     Route: 048
     Dates: start: 20090515
  8. YASMIN [Suspect]
     Indication: CONTRACEPTION
     Dosage: UNK
     Dates: start: 20050101, end: 20090101
  9. CIPROFLOXACIN [Concomitant]
     Indication: PYELONEPHRITIS
     Dosage: 500 MG, BID
     Route: 048
     Dates: start: 20090501

REACTIONS (6)
  - INJURY [None]
  - CHOLECYSTITIS CHRONIC [None]
  - GALLBLADDER INJURY [None]
  - PAIN [None]
  - MENTAL DISORDER [None]
  - ANXIETY [None]
